FAERS Safety Report 4810511-2 (Version None)
Quarter: 2005Q4

REPORT INFORMATION
  Report Type: 
  Country: None (occurrence: None)
  Receive Date: 20051025
  Receipt Date: 20051025
  Transmission Date: 20060501
  Serious: Yes (Other)
  Sender: FDA-Public Use
  Company Number: None

PATIENT
  Age: 41 Year
  Sex: Female
  Weight: 68.0396 kg

DRUGS (1)
  1. HYDROCORTISONE ACETATE [Suspect]
     Indication: HAEMORRHOIDS
     Dosage: 25 MG  TWICE PER DAY RECTAL
     Route: 054
     Dates: start: 20051017, end: 20051024

REACTIONS (2)
  - DRUG INEFFECTIVE [None]
  - PHARMACEUTICAL PRODUCT COMPLAINT [None]
